FAERS Safety Report 24413580 (Version 2)
Quarter: 2024Q4

REPORT INFORMATION
  Report Type: Spontaneous
  Country: US (occurrence: US)
  Receive Date: 20241008
  Receipt Date: 20241118
  Transmission Date: 20250115
  Serious: No
  Sender: BRISTOL-MYERS SQUIBB COMPANY
  Company Number: US-BRISTOL-MYERS SQUIBB COMPANY-2024-158643

PATIENT
  Age: 52 Year
  Sex: Female

DRUGS (1)
  1. POMALYST [Suspect]
     Active Substance: POMALIDOMIDE
     Indication: Plasma cell myeloma
     Route: 048
     Dates: start: 202409

REACTIONS (14)
  - Joint swelling [Unknown]
  - Dyspnoea [Unknown]
  - Fatigue [Unknown]
  - Constipation [Unknown]
  - Chromaturia [Unknown]
  - Faeces discoloured [Unknown]
  - Peripheral swelling [Unknown]
  - Emergency care examination [Unknown]
  - Off label use [Unknown]
  - Depressed mood [Unknown]
  - Apathy [Unknown]
  - Irritability [Unknown]
  - Emotional disorder [Unknown]
  - Depression [Unknown]
